FAERS Safety Report 14897280 (Version 1)
Quarter: 2018Q2

REPORT INFORMATION
  Report Type: Spontaneous
  Country: US (occurrence: US)
  Receive Date: 20180515
  Receipt Date: 20180515
  Transmission Date: 20180711
  Serious: No
  Sender: FDA-Public Use
  Company Number: US-GLAXOSMITHKLINE-US2018GSK085857

PATIENT
  Age: 4 Day
  Sex: Female

DRUGS (3)
  1. CHLORHEXIDINE [Concomitant]
     Active Substance: CHLORHEXIDINE
     Indication: PRODUCT USED FOR UNKNOWN INDICATION
     Dosage: UNK
  2. SODIUM HYPOCHLORITE [Concomitant]
     Active Substance: SODIUM HYPOCHLORITE
     Indication: PRODUCT USED FOR UNKNOWN INDICATION
     Dosage: UNK
  3. ACITRETIN CAPSULE [Suspect]
     Active Substance: ACITRETIN
     Indication: HARLEQUIN SYNDROME
     Dosage: 1 MG/KG, QD
     Route: 048

REACTIONS (1)
  - Drug ineffective [Unknown]
